FAERS Safety Report 25842837 (Version 1)
Quarter: 2025Q3

REPORT INFORMATION
  Report Type: Spontaneous
  Country: US (occurrence: US)
  Receive Date: 20250924
  Receipt Date: 20250924
  Transmission Date: 20251020
  Serious: No
  Sender: CALLIDITAS THERAPEUTICS AB
  Company Number: US-Calliditas-2025CAL02928

PATIENT
  Age: 67 Year
  Sex: Female

DRUGS (9)
  1. TARPEYO [Suspect]
     Active Substance: BUDESONIDE
     Indication: IgA nephropathy
     Route: 048
     Dates: start: 20250716
  2. LIPITOR [Concomitant]
     Active Substance: ATORVASTATIN CALCIUM
  3. CALCITRIOL [Concomitant]
     Active Substance: CALCITRIOL
  4. DEPAKOTE ER [Concomitant]
     Active Substance: DIVALPROEX SODIUM
  5. ERGOCALCIFEROL [Concomitant]
     Active Substance: ERGOCALCIFEROL
  6. LOSARTAN [Concomitant]
     Active Substance: LOSARTAN
  7. MOUNJARO [Concomitant]
     Active Substance: TIRZEPATIDE
  8. OLANZPINE [Concomitant]
  9. TRINTELLIX [Concomitant]
     Active Substance: VORTIOXETINE HYDROBROMIDE

REACTIONS (1)
  - Chest discomfort [Unknown]
